FAERS Safety Report 7956991-5 (Version None)
Quarter: 2011Q4

REPORT INFORMATION
  Report Type: 
  Country: None (occurrence: None)
  Receive Date: 20111205
  Receipt Date: 20111205
  Transmission Date: 20120403
  Serious: Yes (Hospitalization)
  Sender: FDA-Public Use
  Company Number: None

PATIENT
  Age: 3 Year
  Sex: Male
  Weight: 12.7 kg

DRUGS (1)
  1. GAMMAGARD [Suspect]
     Indication: IMMUNOGLOBULINS DECREASED
     Dosage: 64ML
     Route: 041
     Dates: start: 20111130, end: 20111130

REACTIONS (3)
  - VOMITING [None]
  - HEADACHE [None]
  - SOMNOLENCE [None]
